FAERS Safety Report 4283870-X (Version None)
Quarter: 2004Q1

REPORT INFORMATION
  Report Type: 
  Country: None (occurrence: None)
  Receive Date: 20040115
  Receipt Date: 20030625
  Transmission Date: 20041129
  Serious: Yes (Hospitalization)
  Sender: FDA-Public Use
  Company Number: US-JNJFOC-20030600153

PATIENT
  Age: 66 Year
  Sex: Male
  Weight: 108 kg

DRUGS (13)
  1. DOXIL [Suspect]
     Indication: MULTIPLE MYELOMA
     Dosage: 91 MG, 1 IN 128 DAY, INTRAVENOUS DRIP
     Route: 041
     Dates: start: 20030520
  2. VINCRISTINE [Suspect]
     Indication: MULTIPLE MYELOMA
     Dosage: 2 MG, 1 IN 28 DAY, INTRAVENOUS DRIP
     Route: 041
     Dates: start: 20030520
  3. THALIDOME (THALIDOME) [Suspect]
     Indication: MULTIPLE MYELOMA
     Dosage: 50 MG, 1 IN 2 DAY, ORAL
     Route: 048
     Dates: start: 20030520
  4. DECADRON [Suspect]
     Indication: MULTIPLE MYELOMA
     Dosage: 40 MG, 4 IN 28 DAY, ORAL
     Route: 048
     Dates: start: 20030520
  5. SPIRONOLACTONE [Concomitant]
  6. LOPRESSOR [Concomitant]
  7. TERAZOSIN (TERAZOSIN) [Concomitant]
  8. LISINOPRIL [Concomitant]
  9. AMOXICILLIN [Concomitant]
  10. CECLOR [Concomitant]
  11. BACTRIM DS [Concomitant]
  12. ASPIRIN [Concomitant]
  13. DARVOCET (PROPACET) [Concomitant]

REACTIONS (2)
  - CONSTIPATION [None]
  - UROSEPSIS [None]
